FAERS Safety Report 4879865-5 (Version None)
Quarter: 2006Q1

REPORT INFORMATION
  Report Type: 
  Country: None (occurrence: None)
  Receive Date: 20060113
  Receipt Date: 20050113
  Transmission Date: 20060701
  Serious: Yes (Hospitalization, Other)
  Sender: FDA-Public Use
  Company Number: US-MERCK-0501USA02369

PATIENT
  Age: 64 Year
  Sex: Female
  Weight: 89 kg

DRUGS (5)
  1. VIOXX [Suspect]
     Indication: SURGERY
     Route: 048
     Dates: start: 19990101, end: 20040901
  2. VIOXX [Suspect]
     Route: 048
     Dates: start: 19990101, end: 20040901
  3. VIOXX [Suspect]
     Indication: ARTHRITIS
     Route: 048
     Dates: start: 19990101, end: 20040901
  4. VIOXX [Suspect]
     Route: 048
     Dates: start: 19990101, end: 20040901
  5. INSULIN, BIPHASIC ISOPHANE [INJECTION] [Concomitant]
     Route: 058

REACTIONS (11)
  - BRAIN STEM INFARCTION [None]
  - CEREBROVASCULAR ACCIDENT [None]
  - CORONARY ARTERY DISEASE [None]
  - COUGH [None]
  - DEPRESSION [None]
  - HAEMATURIA [None]
  - HYPERCHOLESTEROLAEMIA [None]
  - HYPERLIPIDAEMIA [None]
  - INCONTINENCE [None]
  - MYOCARDIAL INFARCTION [None]
  - TRANSIENT ISCHAEMIC ATTACK [None]
